FAERS Safety Report 25985331 (Version 1)
Quarter: 2025Q4

REPORT INFORMATION
  Report Type: Spontaneous
  Country: US (occurrence: None)
  Receive Date: 20251031
  Receipt Date: 20251031
  Transmission Date: 20260117
  Serious: Yes (Other)
  Sender: FDA-CTU
  Company Number: None

PATIENT
  Age: 49 Year
  Sex: Male

DRUGS (11)
  1. AMBRISENTAN [Suspect]
     Active Substance: AMBRISENTAN
     Indication: Pulmonary arterial hypertension
     Dosage: FREQUENCY : DAILY;?
     Route: 048
     Dates: start: 20240425
  2. TADALAFIL [Suspect]
     Active Substance: TADALAFIL
  3. NIFEDIPINE [Concomitant]
     Active Substance: NIFEDIPINE
  4. PANTOPRAZOLE [Concomitant]
     Active Substance: PANTOPRAZOLE
  5. MONTELUKAST [Concomitant]
     Active Substance: MONTELUKAST
  6. ALBUTEROL SULFATE [Concomitant]
     Active Substance: ALBUTEROL SULFATE
  7. IPRATROPIUM [Concomitant]
     Active Substance: IPRATROPIUM
  8. COLCHICINE [Concomitant]
     Active Substance: COLCHICINE
  9. ketotifen opht drop [Concomitant]
  10. ZYRTEC [Concomitant]
     Active Substance: CETIRIZINE HYDROCHLORIDE
  11. FLONASE [Concomitant]
     Active Substance: FLUTICASONE PROPIONATE

REACTIONS (5)
  - Gastrooesophageal reflux disease [None]
  - Headache [None]
  - Therapy interrupted [None]
  - Dyspnoea [None]
  - Exercise tolerance decreased [None]

NARRATIVE: CASE EVENT DATE: 20251020
